FAERS Safety Report 13783804 (Version 2)
Quarter: 2017Q4

REPORT INFORMATION
  Report Type: Report from Study
  Country: US (occurrence: US)
  Receive Date: 20170724
  Receipt Date: 20171013
  Transmission Date: 20180320
  Serious: Yes (Other)
  Sender: FDA-Public Use
  Company Number: PHEH2017US022583

PATIENT
  Age: 74 Year
  Sex: Female

DRUGS (1)
  1. AFINITOR [Suspect]
     Active Substance: EVEROLIMUS
     Indication: BREAST CANCER
     Dosage: 10 MG, QD
     Route: 048
     Dates: start: 20170105, end: 201707

REACTIONS (4)
  - Dyspnoea [Unknown]
  - Pulmonary fibrosis [Recovered/Resolved]
  - Cough [Recovered/Resolved]
  - Lung abscess [Unknown]

NARRATIVE: CASE EVENT DATE: 201705
